FAERS Safety Report 17995144 (Version 1)
Quarter: 2020Q3

REPORT INFORMATION
  Report Type: Spontaneous
  Country: PT (occurrence: PT)
  Receive Date: 20200708
  Receipt Date: 20200708
  Transmission Date: 20201103
  Serious: Yes (Other)
  Sender: FDA-Public Use
  Company Number: PT-FRESENIUS KABI-FK202006786

PATIENT
  Age: 25 Year
  Sex: Female

DRUGS (1)
  1. METHYLPREDNISOLONE (MANUFACTURER UNKNOWN) [Suspect]
     Active Substance: METHYLPREDNISOLONE
     Indication: HISTIOCYTIC NECROTISING LYMPHADENITIS
     Route: 065

REACTIONS (1)
  - Hypertrophic cardiomyopathy [Recovered/Resolved]
